FAERS Safety Report 10035586 (Version 1)
Quarter: 2014Q1

REPORT INFORMATION
  Report Type: Spontaneous
  Country: US (occurrence: None)
  Receive Date: 20140306
  Receipt Date: 20140306
  Transmission Date: 20141002
  Serious: Yes (Hospitalization, Other)
  Sender: FDA-Public Use
  Company Number: 163-21880-12082418

PATIENT
  Age: 61 Year
  Sex: Male
  Weight: 92.53 kg

DRUGS (7)
  1. REVLIMID (LENALIDOMIDE) (CAPSULES) [Suspect]
     Indication: MYELODYSPLASTIC SYNDROME
     Dosage: 10 MG, 21 IN 21 D, PO
     Route: 048
     Dates: start: 20120628
  2. ASPIRIN (ACETYLSALICYLIC ACID) [Concomitant]
  3. CRESTOR (ROSUVASTATIN) [Concomitant]
  4. LISINOPRIL (LISINOPRIL) [Concomitant]
  5. METOPROLOL (METOPROLOL) [Concomitant]
  6. MULTIVITAMINS (MULTIVITAMINS) [Concomitant]
  7. ZETIA (EZETIMIBE) [Concomitant]

REACTIONS (4)
  - Anaemia [None]
  - Dyspnoea [None]
  - Acute myeloid leukaemia [None]
  - Myelodysplastic syndrome transformation [None]
